FAERS Safety Report 7230618-2 (Version None)
Quarter: 2011Q1

REPORT INFORMATION
  Report Type: 
  Country: None (occurrence: None)
  Receive Date: 20110118
  Receipt Date: 20110112
  Transmission Date: 20110831
  Serious: Yes (Death, Hospitalization, Other)
  Sender: FDA-Public Use
  Company Number: PHHY2009CA32865

PATIENT
  Sex: Female

DRUGS (2)
  1. SANDOSTATIN LAR [Suspect]
     Indication: NEUROENDOCRINE CARCINOMA
     Dosage: 40 MG EVERY 4 WEEKS
     Route: 030
     Dates: start: 20050102
  2. SANDOSTATIN LAR [Suspect]
     Dosage: 60 MG EVERY 4 WEEKS
     Dates: end: 20101221

REACTIONS (11)
  - CLOSTRIDIAL INFECTION [None]
  - DYSPNOEA [None]
  - HAEMOGLOBIN DECREASED [None]
  - CYSTITIS [None]
  - PNEUMONIA [None]
  - PAIN [None]
  - PALLIATIVE CARE [None]
  - VOMITING [None]
  - SINUSITIS [None]
  - NAUSEA [None]
  - DEATH [None]
